FAERS Safety Report 10472579 (Version 1)
Quarter: 2014Q3

REPORT INFORMATION
  Report Type: Spontaneous
  Country: US (occurrence: US)
  Receive Date: 20140924
  Receipt Date: 20140924
  Transmission Date: 20150326
  Serious: No
  Sender: FDA-Public Use
  Company Number: US-PFIZER INC-2014260827

PATIENT
  Age: 76 Year
  Sex: Female
  Weight: 85 kg

DRUGS (2)
  1. DURAGESIC [Suspect]
     Active Substance: FENTANYL
     Dosage: UNK
  2. NEURONTIN [Suspect]
     Active Substance: GABAPENTIN
     Dosage: UNK (5 X A DAY)

REACTIONS (3)
  - Balance disorder [Unknown]
  - Feeling jittery [Unknown]
  - Nervousness [Unknown]
